FAERS Safety Report 7485002-3 (Version None)
Quarter: 2011Q2

REPORT INFORMATION
  Report Type: 
  Country: None (occurrence: None)
  Receive Date: 20110517
  Receipt Date: 20101008
  Transmission Date: 20111010
  Serious: No
  Sender: FDA-Public Use
  Company Number: US-BAYER-201022397BCC

PATIENT
  Age: 44 Year
  Sex: Female
  Weight: 55.455 kg

DRUGS (1)
  1. NAPROXEN (ALEVE) [Suspect]

REACTIONS (4)
  - ABDOMINAL PAIN UPPER [None]
  - URTICARIA [None]
  - HYPERSENSITIVITY [None]
  - PRURITUS ALLERGIC [None]
